FAERS Safety Report 23663198 (Version 2)
Quarter: 2024Q1

REPORT INFORMATION
  Report Type: Spontaneous
  Country: ES (occurrence: ES)
  Receive Date: 20240322
  Receipt Date: 20240328
  Transmission Date: 20240410
  Serious: No
  Sender: FDA-Public Use
  Company Number: ES-PFIZER INC-202400055208

PATIENT
  Age: 36 Year
  Sex: Female

DRUGS (1)
  1. FILGRASTIM [Suspect]
     Active Substance: FILGRASTIM
     Indication: Prophylaxis against transplant rejection
     Dosage: 0.2 ML EVERY 3 DAYS

REACTIONS (3)
  - Device use error [Unknown]
  - Multiple use of single-use product [Unknown]
  - Off label use [Unknown]
